FAERS Safety Report 11193652 (Version 2)
Quarter: 2015Q3

REPORT INFORMATION
  Report Type: Spontaneous
  Country: US (occurrence: US)
  Receive Date: 20150616
  Receipt Date: 20150731
  Transmission Date: 20151125
  Serious: Yes (Disabling, Other)
  Sender: FDA-Public Use
  Company Number: US-ASTRAZENECA-2015SE56562

PATIENT
  Age: 57 Year
  Sex: Male
  Weight: 89.4 kg

DRUGS (14)
  1. LIPITOR [Concomitant]
     Active Substance: ATORVASTATIN CALCIUM
     Route: 048
  2. MELOTROL [Concomitant]
     Indication: STENT PLACEMENT
     Dosage: ONE HALF A PILL IN THE MORNING AND ONE HALF AT NIGHT
     Route: 048
  3. EFFIENT [Concomitant]
     Active Substance: PRASUGREL HYDROCHLORIDE
  4. BABY ASPIRIN [Concomitant]
     Active Substance: ASPIRIN
     Indication: STENT PLACEMENT
     Dosage: ASPIRIN
     Route: 048
  5. COLACE [Concomitant]
     Active Substance: DOCUSATE SODIUM
  6. MELOTROL [Concomitant]
     Indication: CARDIAC DISORDER
     Route: 048
  7. PRN ACETAMINOPHEN [Concomitant]
  8. PRN ONDANSETRON [Concomitant]
  9. BRILINTA [Suspect]
     Active Substance: TICAGRELOR
     Indication: STENT PLACEMENT
     Dosage: TWO TIMES A DAY
     Route: 048
  10. PRN HYDRALAZINE [Concomitant]
  11. PRN NITROGLYCERIN [Concomitant]
  12. BABY ASPIRIN [Concomitant]
     Active Substance: ASPIRIN
     Indication: STENT PLACEMENT
     Dosage: DAILY
     Route: 048
  13. MELOTROL [Concomitant]
     Indication: CARDIAC DISORDER
     Dosage: ONE HALF A PILL IN THE MORNING AND ONE HALF AT NIGHT
     Route: 048
  14. MELOTROL [Concomitant]
     Indication: STENT PLACEMENT
     Route: 048

REACTIONS (3)
  - Epistaxis [Unknown]
  - Vomiting [Unknown]
  - Contusion [Unknown]

NARRATIVE: CASE EVENT DATE: 20150609
